FAERS Safety Report 12803142 (Version 1)
Quarter: 2016Q4

REPORT INFORMATION
  Report Type: Report from Study
  Country: BR (occurrence: BR)
  Receive Date: 20161003
  Receipt Date: 20161003
  Transmission Date: 20170207
  Serious: Yes (Other)
  Sender: FDA-Public Use
  Company Number: PHHY2016BR135162

PATIENT
  Sex: Male
  Weight: 102 kg

DRUGS (4)
  1. FORASEQ [Suspect]
     Active Substance: BUDESONIDE\FORMOTEROL FUMARATE
     Indication: RHINITIS ALLERGIC
  2. FORASEQ [Suspect]
     Active Substance: BUDESONIDE\FORMOTEROL FUMARATE
     Indication: HYPERSENSITIVITY
     Dosage: 1 DF, QD
     Route: 065
  3. FORASEQ [Suspect]
     Active Substance: BUDESONIDE\FORMOTEROL FUMARATE
     Indication: RESPIRATORY DISORDER
     Dosage: 1 DF, (BUDESONIDE 200 UG AND FORMOTEROL FUMARATE UNK ) QD
     Route: 055
  4. FORASEQ [Suspect]
     Active Substance: BUDESONIDE\FORMOTEROL FUMARATE
     Indication: ASTHMA
     Dosage: 1 DF (BUDESONIDE 200 UG AND FORMOTEROL FUMARATE 12 UG), BID (FIVE YEARS )
     Route: 065

REACTIONS (4)
  - Expired product administered [Unknown]
  - Product use issue [Unknown]
  - Inappropriate schedule of drug administration [Unknown]
  - Asthmatic crisis [Recovering/Resolving]
